FAERS Safety Report 12507105 (Version 1)
Quarter: 2016Q2

REPORT INFORMATION
  Report Type: Spontaneous
  Country: US (occurrence: US)
  Receive Date: 20160629
  Receipt Date: 20160629
  Transmission Date: 20160815
  Serious: No
  Sender: FDA-Public Use
  Company Number: US-TEVA-640975USA

PATIENT
  Sex: Female
  Weight: 83.99 kg

DRUGS (1)
  1. SIMVASTATIN. [Suspect]
     Active Substance: SIMVASTATIN
     Dosage: 80 MILLIGRAM DAILY;
     Route: 048
     Dates: start: 201205, end: 201410

REACTIONS (4)
  - Aphasia [Recovered/Resolved]
  - Product substitution issue [Recovered/Resolved]
  - Memory impairment [Recovered/Resolved]
  - Drug hypersensitivity [Unknown]

NARRATIVE: CASE EVENT DATE: 2012
